FAERS Safety Report 15103667 (Version 3)
Quarter: 2018Q4

REPORT INFORMATION
  Report Type: Report from Study
  Country: CA (occurrence: CA)
  Receive Date: 20180703
  Receipt Date: 20181016
  Transmission Date: 20190204
  Serious: Yes (Hospitalization, Other)
  Sender: FDA-Public Use
  Company Number: CA-JNJFOC-20180330201

PATIENT
  Age: 34 Year
  Sex: Female
  Weight: 44 kg

DRUGS (3)
  1. REMICADE [Suspect]
     Active Substance: INFLIXIMAB
     Indication: CROHN^S DISEASE
     Route: 042
     Dates: start: 20101119
  2. REMICADE [Suspect]
     Active Substance: INFLIXIMAB
     Indication: CROHN^S DISEASE
     Route: 042
     Dates: start: 20180830
  3. REMICADE [Suspect]
     Active Substance: INFLIXIMAB
     Indication: CROHN^S DISEASE
     Route: 042

REACTIONS (13)
  - Weight decreased [Unknown]
  - Respiratory arrest [Unknown]
  - Abdominal pain [Unknown]
  - Neoplasm [Unknown]
  - General physical health deterioration [Unknown]
  - Neck mass [Unknown]
  - Uterine haemorrhage [Recovering/Resolving]
  - Vomiting [Recovering/Resolving]
  - Post procedural complication [Unknown]
  - Back pain [Not Recovered/Not Resolved]
  - Ovarian cancer [Recovering/Resolving]
  - Post procedural haemorrhage [Not Recovered/Not Resolved]
  - Hernia [Unknown]

NARRATIVE: CASE EVENT DATE: 2018
